FAERS Safety Report 4506768-8 (Version None)
Quarter: 2004Q4

REPORT INFORMATION
  Report Type: 
  Country: None (occurrence: None)
  Receive Date: 20041122
  Receipt Date: 20041117
  Transmission Date: 20050328
  Serious: Yes (Other)
  Sender: FDA-Public Use
  Company Number: PHBS2004SE15454

PATIENT
  Sex: Female

DRUGS (1)
  1. VOLTAREN [Suspect]

REACTIONS (4)
  - DIARRHOEA [None]
  - EYE LASER SURGERY [None]
  - VITREOUS DETACHMENT [None]
  - VITREOUS DISORDER [None]
